FAERS Safety Report 23486321 (Version 1)
Quarter: 2024Q1

REPORT INFORMATION
  Report Type: Spontaneous
  Country: RU (occurrence: RU)
  Receive Date: 20240206
  Receipt Date: 20240206
  Transmission Date: 20240410
  Serious: Yes (Hospitalization)
  Sender: FDA-Public Use
  Company Number: RU-ABBVIE-5624227

PATIENT
  Age: 6 Year
  Sex: Female
  Weight: 36 kg

DRUGS (1)
  1. SEVOFLURANE [Suspect]
     Active Substance: SEVOFLURANE
     Indication: Product used for unknown indication
     Route: 050
     Dates: start: 20220702, end: 20220702

REACTIONS (9)
  - Hyperthermia [Recovering/Resolving]
  - Blood creatine phosphokinase increased [Unknown]
  - Leukocytosis [Recovered/Resolved]
  - C-reactive protein increased [Unknown]
  - Tetany [Recovering/Resolving]
  - Alanine aminotransferase increased [Unknown]
  - Aspartate aminotransferase increased [Unknown]
  - Carbon dioxide increased [Unknown]
  - Tachycardia [Recovering/Resolving]

NARRATIVE: CASE EVENT DATE: 20220702
